FAERS Safety Report 6265465-1 (Version None)
Quarter: 2009Q3

REPORT INFORMATION
  Report Type: 
  Country: None (occurrence: None)
  Receive Date: 20090713
  Receipt Date: 20090702
  Transmission Date: 20100115
  Serious: Yes (Hospitalization)
  Sender: FDA-Public Use
  Company Number: JP-ASTRAZENECA-2009SE04372

PATIENT
  Age: 72 Year
  Sex: Female

DRUGS (5)
  1. MEROPEN [Suspect]
     Route: 042
     Dates: start: 20090530, end: 20090601
  2. VFEND [Suspect]
     Dates: start: 20090530, end: 20090606
  3. CIPROXAN [Suspect]
     Dates: start: 20090601, end: 20090612
  4. AMBISOME [Suspect]
     Dates: start: 20090606, end: 20090617
  5. CRAVIT [Suspect]
     Dates: start: 20090612, end: 20090615

REACTIONS (1)
  - DRUG ERUPTION [None]
